FAERS Safety Report 11305134 (Version 1)
Quarter: 2015Q3

REPORT INFORMATION
  Report Type: Spontaneous
  Country: US (occurrence: US)
  Receive Date: 20150723
  Receipt Date: 20150723
  Transmission Date: 20151125
  Serious: No
  Sender: FDA-Public Use
  Company Number: US-JNJFOC-20150510724

PATIENT
  Age: 73 Year
  Sex: Female
  Weight: 72.12 kg

DRUGS (2)
  1. ZYRTEC [Suspect]
     Active Substance: CETIRIZINE HYDROCHLORIDE
     Indication: MULTIPLE ALLERGIES
     Dosage: TOOK FIRST PILL ON 13-MAY-2015 AND TOOK A SECOND ONE 14 HOURS LATER
     Route: 048
     Dates: start: 20150513
  2. ZYRTEC [Suspect]
     Active Substance: CETIRIZINE HYDROCHLORIDE
     Indication: DIZZINESS
     Dosage: TOOK FIRST PILL ON 13-MAY-2015 AND TOOK A SECOND ONE 14 HOURS LATER
     Route: 048
     Dates: start: 20150513

REACTIONS (3)
  - Inappropriate schedule of drug administration [Unknown]
  - Off label use [Unknown]
  - Somnolence [Not Recovered/Not Resolved]
